FAERS Safety Report 4999378-X (Version None)
Quarter: 2006Q2

REPORT INFORMATION
  Report Type: 
  Country: None (occurrence: None)
  Receive Date: 20060510
  Receipt Date: 20060510
  Transmission Date: 20061013
  Serious: Yes (Other)
  Sender: FDA-Public Use
  Company Number: None

PATIENT
  Sex: Female
  Weight: 116 kg

DRUGS (10)
  1. PROZAC [Suspect]
     Indication: ATTENTION DEFICIT/HYPERACTIVITY DISORDER
     Dosage: 40 MG DAILY PO
     Route: 048
     Dates: start: 20060410, end: 20060504
  2. STRATTERA [Suspect]
     Indication: ATTENTION DEFICIT/HYPERACTIVITY DISORDER
     Dosage: 40 MG DAILY PO [STILL TAKING]
     Route: 048
     Dates: start: 20060405, end: 20060504
  3. PRILOSEC [Concomitant]
  4. REGLAN [Concomitant]
  5. BUSPAR [Concomitant]
  6. CALTRATE [Concomitant]
  7. CITRUCEL [Concomitant]
  8. COLAGE [Concomitant]
  9. KUZYME [Concomitant]
  10. MIRALAX [Concomitant]

REACTIONS (5)
  - BLOOD PRESSURE ABNORMAL [None]
  - PALPITATIONS [None]
  - PARAESTHESIA [None]
  - PULSE ABNORMAL [None]
  - UNEVALUABLE EVENT [None]
